FAERS Safety Report 7016788-X (Version None)
Quarter: 2010Q3

REPORT INFORMATION
  Report Type: 
  Country: None (occurrence: None)
  Receive Date: 20100927
  Receipt Date: 20100914
  Transmission Date: 20110219
  Serious: No
  Sender: FDA-Public Use
  Company Number: AT-ELI_LILLY_AND_COMPANY-AT201009006083

PATIENT
  Age: 42 Year
  Sex: Female

DRUGS (6)
  1. CYMBALTA [Suspect]
     Indication: DEPRESSION
     Dosage: 30 MG, DAILY (1/D)
     Route: 048
     Dates: start: 20100721, end: 20100801
  2. CYMBALTA [Interacting]
     Dosage: 60 MG, DAILY (1/D)
     Route: 048
     Dates: start: 20100802
  3. CONCOR [Concomitant]
     Dosage: 2.5 MG, UNK
  4. DOMINAL [Concomitant]
     Dosage: 80 MG, UNK
  5. POLYETHYLENE GLYCOL [Concomitant]
  6. NSAID'S [Concomitant]

REACTIONS (7)
  - ALANINE AMINOTRANSFERASE INCREASED [None]
  - ASPARTATE AMINOTRANSFERASE INCREASED [None]
  - DRUG INTERACTION [None]
  - GAMMA-GLUTAMYLTRANSFERASE INCREASED [None]
  - HEPATIC FUNCTION ABNORMAL [None]
  - MALAISE [None]
  - NAUSEA [None]
